FAERS Safety Report 5260002-2 (Version None)
Quarter: 2007Q1

REPORT INFORMATION
  Report Type: 
  Country: None (occurrence: None)
  Receive Date: 20070309
  Receipt Date: 20060130
  Transmission Date: 20070707
  Serious: No
  Sender: FDA-Public Use
  Company Number: US-GLAXOSMITHKLINE-A0591194A

PATIENT
  Age: 22 Year
  Sex: Male

DRUGS (1)
  1. NICORETTE [Suspect]
     Dates: start: 20060126, end: 20060126

REACTIONS (5)
  - GINGIVAL PAIN [None]
  - GLOSSODYNIA [None]
  - HYPOAESTHESIA ORAL [None]
  - NAUSEA [None]
  - ORAL PAIN [None]
